FAERS Safety Report 7687777-7 (Version None)
Quarter: 2011Q3

REPORT INFORMATION
  Report Type: 
  Country: None (occurrence: None)
  Receive Date: 20110817
  Receipt Date: 20110808
  Transmission Date: 20111222
  Serious: Yes (Hospitalization)
  Sender: FDA-Public Use
  Company Number: US-US-EMD SERONO, INC.-7074671

PATIENT
  Sex: Female
  Weight: 122 kg

DRUGS (4)
  1. NEURONTIN [Concomitant]
  2. REBIF [Suspect]
     Route: 058
     Dates: start: 20110701
  3. CELEXONE [Concomitant]
  4. REBIF [Suspect]
     Indication: MULTIPLE SCLEROSIS
     Route: 058
     Dates: start: 20110629, end: 20110701

REACTIONS (1)
  - MULTIPLE SCLEROSIS RELAPSE [None]
